FAERS Safety Report 6382646-7 (Version None)
Quarter: 2009Q3

REPORT INFORMATION
  Report Type: 
  Country: None (occurrence: None)
  Receive Date: 20090930
  Receipt Date: 20090922
  Transmission Date: 20100115
  Serious: Yes (Other)
  Sender: FDA-Public Use
  Company Number: BR-JNJFOC-20090906782

PATIENT
  Age: 50 Year
  Sex: Female

DRUGS (3)
  1. REMICADE [Suspect]
     Dosage: 2ND DOSE
     Route: 042
  2. REMICADE [Suspect]
     Indication: RHEUMATOID ARTHRITIS
     Dosage: 1ST DOSE
     Route: 042
  3. METHOTREXATE [Concomitant]

REACTIONS (5)
  - CHEST PAIN [None]
  - EMOTIONAL DISTRESS [None]
  - INFUSION RELATED REACTION [None]
  - PALPITATIONS [None]
  - SUFFOCATION FEELING [None]
